FAERS Safety Report 4778709-X (Version None)
Quarter: 2005Q3

REPORT INFORMATION
  Report Type: 
  Country: None (occurrence: None)
  Receive Date: 20050926
  Receipt Date: 20050914
  Transmission Date: 20060218
  Serious: Yes (Other)
  Sender: FDA-Public Use
  Company Number: 200512722JP

PATIENT
  Age: 82 Year
  Sex: Female

DRUGS (2)
  1. GLIBENCLAMIDE [Suspect]
  2. PROPRANOLOL HYDROCHLORIDE [Concomitant]

REACTIONS (4)
  - DEPRESSED LEVEL OF CONSCIOUSNESS [None]
  - DIARRHOEA [None]
  - HYPOGLYCAEMIA [None]
  - VOMITING [None]
